FAERS Safety Report 25004589 (Version 1)
Quarter: 2025Q1

REPORT INFORMATION
  Report Type: Spontaneous
  Country: US (occurrence: None)
  Receive Date: 20250222
  Receipt Date: 20250222
  Transmission Date: 20250408
  Serious: Yes (Other)
  Sender: FDA-CTU
  Company Number: None

PATIENT
  Age: 29 Year
  Sex: Female
  Weight: 108 kg

DRUGS (11)
  1. QELBREE [Suspect]
     Active Substance: VILOXAZINE HYDROCHLORIDE
     Indication: Attention deficit hyperactivity disorder
     Route: 048
     Dates: start: 20250221, end: 20250222
  2. LITHIUM [Concomitant]
     Active Substance: LITHIUM
  3. HYDROXYZINE [Concomitant]
     Active Substance: HYDROXYZINE HYDROCHLORIDE
  4. CAPLYTA [Concomitant]
     Active Substance: LUMATEPERONE
  5. DILTIAZEM [Concomitant]
     Active Substance: DILTIAZEM
  6. NEBIVOLOL [Concomitant]
     Active Substance: NEBIVOLOL
  7. PANTOPRAZOLE [Concomitant]
     Active Substance: PANTOPRAZOLE
  8. FAMOTIDINE [Concomitant]
     Active Substance: FAMOTIDINE
  9. OREGANO [Concomitant]
     Active Substance: OREGANO
  10. cysterglow [Concomitant]
  11. CRANBERRY [Concomitant]
     Active Substance: CRANBERRY

REACTIONS (6)
  - Dizziness [None]
  - Asthenia [None]
  - Vision blurred [None]
  - Chest pain [None]
  - Nausea [None]
  - Nonspecific reaction [None]

NARRATIVE: CASE EVENT DATE: 20250222
